FAERS Safety Report 18719485 (Version 1)
Quarter: 2021Q1

REPORT INFORMATION
  Report Type: Spontaneous
  Country: US (occurrence: US)
  Receive Date: 20210108
  Receipt Date: 20210108
  Transmission Date: 20210419
  Serious: Yes (Hospitalization)
  Sender: FDA-Public Use
  Company Number: US-CELGENEUS-USA-20210100795

PATIENT
  Sex: Female
  Weight: 102.15 kg

DRUGS (7)
  1. INOSITOL?5 [Concomitant]
     Indication: SUPPLEMENTATION THERAPY
     Route: 048
  2. EMERGEN?C FIVE [Concomitant]
     Indication: SUPPLEMENTATION THERAPY
     Route: 048
  3. TYLENOL EXTRA STRENGTH [Concomitant]
     Active Substance: ACETAMINOPHEN
     Indication: SLEEP DISORDER
     Route: 048
  4. REVLIMID [Suspect]
     Active Substance: LENALIDOMIDE
     Indication: PLASMA CELL MYELOMA
     Dosage: 25 MILLIGRAM
     Route: 048
     Dates: start: 20201215
  5. CEPHALEXIN. [Concomitant]
     Active Substance: CEPHALEXIN
     Indication: PROPHYLAXIS
     Route: 048
  6. ASA [Concomitant]
     Active Substance: ASPIRIN
     Indication: PAIN
     Route: 048
  7. LASIX [Concomitant]
     Active Substance: FUROSEMIDE
     Indication: FLUID OVERLOAD
     Route: 048

REACTIONS (2)
  - Full blood count decreased [Unknown]
  - Syncope [Unknown]

NARRATIVE: CASE EVENT DATE: 2020
